FAERS Safety Report 25427977 (Version 1)
Quarter: 2025Q2

REPORT INFORMATION
  Report Type: Spontaneous
  Country: CA (occurrence: CA)
  Receive Date: 20250612
  Receipt Date: 20250612
  Transmission Date: 20250717
  Serious: Yes (Death, Life-Threatening, Hospitalization)
  Sender: PFIZER
  Company Number: CA-PFIZER INC-202500119778

PATIENT
  Age: 68 Year
  Sex: Female

DRUGS (3)
  1. TIGECYCLINE [Suspect]
     Active Substance: TIGECYCLINE
     Route: 042
  2. FOSFOMYCIN [Suspect]
     Active Substance: FOSFOMYCIN
     Route: 042
  3. IMIPENEM AND CILASTATIN [Suspect]
     Active Substance: CILASTATIN SODIUM\IMIPENEM
     Route: 042

REACTIONS (1)
  - Thrombocytopenia [Fatal]
